FAERS Safety Report 5843512-6 (Version None)
Quarter: 2008Q3

REPORT INFORMATION
  Report Type: 
  Country: None (occurrence: None)
  Receive Date: 20080812
  Receipt Date: 20080812
  Transmission Date: 20090109
  Serious: Yes (Hospitalization)
  Sender: FDA-Public Use
  Company Number: None

PATIENT
  Sex: Female
  Weight: 45 kg

DRUGS (2)
  1. CARBOPLATIN [Suspect]
     Dosage: 534 MG
     Dates: end: 20080721
  2. TAXOL [Suspect]
     Dosage: 233 MG
     Dates: end: 20080721

REACTIONS (10)
  - ABDOMINAL PAIN [None]
  - BACTERIA URINE IDENTIFIED [None]
  - DEHYDRATION [None]
  - DIZZINESS [None]
  - NAUSEA [None]
  - NITRITE URINE PRESENT [None]
  - SOMNOLENCE [None]
  - URINE LEUKOCYTE ESTERASE POSITIVE [None]
  - VOMITING [None]
  - WHITE BLOOD CELLS URINE POSITIVE [None]
